FAERS Safety Report 26200824 (Version 1)
Quarter: 2025Q4

REPORT INFORMATION
  Report Type: Spontaneous
  Country: EU (occurrence: EU)
  Receive Date: 20251226
  Receipt Date: 20251226
  Transmission Date: 20260117
  Serious: Yes (Hospitalization, Other)
  Sender: ALKEM
  Company Number: EU-ALKEM LABORATORIES LIMITED-DE-ALKEM-2025-13762

PATIENT
  Sex: Male

DRUGS (7)
  1. IBUPROFEN [Suspect]
     Active Substance: IBUPROFEN
     Indication: Product used for unknown indication
     Dosage: 1600 MILLIGRAM
     Route: 065
     Dates: start: 20190730, end: 20190930
  2. IBUPROFEN [Suspect]
     Active Substance: IBUPROFEN
     Dosage: 800 MILLIGRAM
     Route: 065
     Dates: start: 20210326, end: 20241024
  3. NAPROXEN [Suspect]
     Active Substance: NAPROXEN
     Indication: Product used for unknown indication
     Dosage: 500 MILLIGRAM
     Route: 065
     Dates: start: 20241025, end: 20241115
  4. TALTZ [Suspect]
     Active Substance: IXEKIZUMAB
     Indication: Product used for unknown indication
     Dosage: 160 MILLIGRAM
     Route: 065
     Dates: start: 20190930
  5. TALTZ [Suspect]
     Active Substance: IXEKIZUMAB
     Dosage: 80 MILLIGRAM
     Route: 065
     Dates: start: 20190930, end: 20200131
  6. TALTZ [Suspect]
     Active Substance: IXEKIZUMAB
     Dosage: 80 MILLIGRAM
     Route: 065
     Dates: start: 20210414, end: 20210630
  7. TALTZ [Suspect]
     Active Substance: IXEKIZUMAB
     Dosage: 80 MILLIGRAM
     Route: 065
     Dates: start: 20220614, end: 20241115

REACTIONS (1)
  - Cerebral infarction [Unknown]

NARRATIVE: CASE EVENT DATE: 20250225
